FAERS Safety Report 7412950-2 (Version None)
Quarter: 2011Q2

REPORT INFORMATION
  Report Type: 
  Country: None (occurrence: None)
  Receive Date: 20110405
  Receipt Date: 20110324
  Transmission Date: 20111010
  Serious: Yes (Other)
  Sender: FDA-Public Use
  Company Number: 1000019453

PATIENT
  Age: 17 Year
  Sex: Male
  Weight: 52 kg

DRUGS (1)
  1. ESCITALOPRAM [Suspect]
     Indication: DEPRESSION
     Dosage: 10 MG (10 MG, 1 IN 1 D), ORAL
     Route: 048
     Dates: start: 20050101

REACTIONS (4)
  - ERECTILE DYSFUNCTION [None]
  - ANORGASMIA [None]
  - SENSORY LOSS [None]
  - GENITAL HYPOAESTHESIA [None]
